FAERS Safety Report 12563698 (Version 4)
Quarter: 2016Q3

REPORT INFORMATION
  Report Type: Spontaneous
  Country: JP (occurrence: JP)
  Receive Date: 20160716
  Receipt Date: 20160924
  Transmission Date: 20161109
  Serious: Yes (Hospitalization, Other)
  Sender: FDA-Public Use
  Company Number: JP-AMGEN-JPNSP2015140940

PATIENT
  Age: 67 Year
  Sex: Male
  Weight: 55 kg

DRUGS (17)
  1. 5-FU                               /00098801/ [Suspect]
     Active Substance: FLUOROURACIL
     Dosage: 3750 MG, Q2WEEKS
     Route: 041
     Dates: start: 20150428
  2. VECTIBIX [Suspect]
     Active Substance: PANITUMUMAB
     Dosage: 250 MG, Q2WK
     Route: 041
     Dates: start: 20151002
  3. 5-FU                               /00098801/ [Suspect]
     Active Substance: FLUOROURACIL
     Dosage: 500 MG, Q2WK
     Route: 040
     Dates: start: 20151110
  4. ELPLAT [Suspect]
     Active Substance: OXALIPLATIN
     Dosage: 110 MG, Q2WEEKS
     Route: 041
     Dates: start: 20150908
  5. 5-FU                               /00098801/ [Suspect]
     Active Substance: FLUOROURACIL
     Dosage: 3000 MG, Q2WEEKS
     Route: 041
     Dates: start: 20151110
  6. 5-FU                               /00098801/ [Suspect]
     Active Substance: FLUOROURACIL
     Dosage: 3500 MG, Q2WEEKS
     Route: 041
     Dates: start: 20150811
  7. 5-FU                               /00098801/ [Suspect]
     Active Substance: FLUOROURACIL
     Dosage: 3000 MG, Q2WEEKS
     Route: 041
     Dates: start: 20150908
  8. 5-FU                               /00098801/ [Suspect]
     Active Substance: FLUOROURACIL
     Dosage: 3000 MG, Q2WEEKS
     Route: 041
     Dates: start: 20150908
  9. VECTIBIX [Suspect]
     Active Substance: PANITUMUMAB
     Indication: COLON CANCER
     Dosage: 320 MG, Q2WK
     Route: 041
     Dates: start: 20150428
  10. VECTIBIX [Suspect]
     Active Substance: PANITUMUMAB
     Dosage: 340 MG, Q2WK
     Route: 041
     Dates: start: 20150512
  11. 5-FU                               /00098801/ [Suspect]
     Active Substance: FLUOROURACIL
     Indication: COLON CANCER
     Dosage: 600 MG, Q2WK
     Route: 040
     Dates: start: 20150428
  12. VECTIBIX [Suspect]
     Active Substance: PANITUMUMAB
     Dosage: 330 MG, Q2WK
     Route: 041
     Dates: start: 20150609
  13. VECTIBIX [Suspect]
     Active Substance: PANITUMUMAB
     Dosage: 250 MG, Q2WK
     Route: 041
     Dates: start: 20151110
  14. ELPLAT [Suspect]
     Active Substance: OXALIPLATIN
     Indication: COLON CANCER
     Dosage: 130 MG, Q2WEEKS
     Route: 041
     Dates: start: 20150428
  15. CALCIUM LEVOFOLINATE [Concomitant]
     Active Substance: LEVOLEUCOVORIN CALCIUM
     Indication: COLON CANCER
     Dosage: UNK
     Route: 041
     Dates: start: 20150428
  16. VECTIBIX [Suspect]
     Active Substance: PANITUMUMAB
     Dosage: 300 MG, Q2WK
     Route: 041
     Dates: start: 20150811
  17. CALCIUM LEVOFOLINATE [Concomitant]
     Active Substance: LEVOLEUCOVORIN CALCIUM
     Dosage: UNK
     Route: 041
     Dates: start: 20151110

REACTIONS (2)
  - Interstitial lung disease [Recovering/Resolving]
  - Neuropathy peripheral [Unknown]

NARRATIVE: CASE EVENT DATE: 20151110
